FAERS Safety Report 19666820 (Version 3)
Quarter: 2021Q3

REPORT INFORMATION
  Report Type: Spontaneous
  Country: JP (occurrence: JP)
  Receive Date: 20210806
  Receipt Date: 20210922
  Transmission Date: 20211014
  Serious: Yes (Hospitalization, Other)
  Sender: FDA-Public Use
  Company Number: JP-BRISTOL-MYERS SQUIBB COMPANY-BMS-2021-075505

PATIENT
  Age: 84 Year
  Sex: Male

DRUGS (5)
  1. OPDIVO [Suspect]
     Active Substance: NIVOLUMAB
     Indication: METASTATIC RENAL CELL CARCINOMA
     Dosage: UNK, ONE TIME DOSE
     Route: 041
     Dates: start: 20191211, end: 20191211
  2. OPDIVO [Suspect]
     Active Substance: NIVOLUMAB
     Dosage: UNK, ONE TIME DOSE
     Route: 041
     Dates: start: 20200409, end: 20200409
  3. OPDIVO [Suspect]
     Active Substance: NIVOLUMAB
     Dosage: UNK, ONE TIME DOSE
     Route: 041
     Dates: start: 20200213, end: 20200213
  4. YERVOY [Suspect]
     Active Substance: IPILIMUMAB
     Indication: METASTATIC RENAL CELL CARCINOMA
     Dosage: UNK, ONE TIME DOSE
     Route: 041
     Dates: start: 20191211, end: 20191211
  5. OPDIVO [Suspect]
     Active Substance: NIVOLUMAB
     Dosage: UNK, ONE TIME DOSE
     Route: 041
     Dates: start: 20200312, end: 20200312

REACTIONS (11)
  - Blood creatinine increased [Unknown]
  - Renal impairment [Unknown]
  - Decreased appetite [Unknown]
  - Infusion related reaction [Unknown]
  - Oedema [Unknown]
  - Autoimmune hepatitis [Unknown]
  - Delirium [Recovering/Resolving]
  - Tumour associated fever [Unknown]
  - Diarrhoea [Unknown]
  - Steroid diabetes [Unknown]
  - Interstitial lung disease [Unknown]

NARRATIVE: CASE EVENT DATE: 202008
